FAERS Safety Report 15251160 (Version 1)
Quarter: 2018Q3

REPORT INFORMATION
  Report Type: Spontaneous
  Country: CN (occurrence: CN)
  Receive Date: 20180807
  Receipt Date: 20180807
  Transmission Date: 20181010
  Serious: Yes (Other)
  Sender: FDA-Public Use
  Company Number: CN-PURDUE-GBR-2018-0058100

PATIENT
  Age: 84 Year
  Sex: Male

DRUGS (1)
  1. MS CONTIN [Suspect]
     Active Substance: MORPHINE SULFATE
     Indication: HEPATIC CANCER
     Dosage: 30 MG, DAILY
     Route: 048
     Dates: start: 20180528, end: 20180603

REACTIONS (3)
  - Depressed level of consciousness [Recovering/Resolving]
  - Neologism [Recovering/Resolving]
  - Somnolence [Recovering/Resolving]

NARRATIVE: CASE EVENT DATE: 20180603
